FAERS Safety Report 19280544 (Version 3)
Quarter: 2023Q1

REPORT INFORMATION
  Report Type: Other
  Country: FR (occurrence: None)
  Receive Date: 20210520
  Receipt Date: 20230331
  Transmission Date: 20230417
  Serious: Yes (Other)
  Sender: FDA-Public Use
  Company Number: FR-ROCHE-2610123

PATIENT
  Age: 50 Year
  Sex: Female
  Weight: 52 kg

DRUGS (15)
  1. ATEZOLIZUMAB [Suspect]
     Active Substance: ATEZOLIZUMAB
     Indication: Non-small cell lung cancer metastatic
     Route: 042
     Dates: start: 20190627
  2. ATEZOLIZUMAB [Suspect]
     Active Substance: ATEZOLIZUMAB
     Route: 042
     Dates: start: 20190718
  3. ATEZOLIZUMAB [Suspect]
     Active Substance: ATEZOLIZUMAB
     Route: 042
     Dates: start: 20190919
  4. ATEZOLIZUMAB [Suspect]
     Active Substance: ATEZOLIZUMAB
     Route: 042
     Dates: start: 20190627
  5. ATEZOLIZUMAB [Suspect]
     Active Substance: ATEZOLIZUMAB
     Route: 042
     Dates: start: 20190829
  6. INNOHEP [Concomitant]
     Active Substance: TINZAPARIN SODIUM
     Indication: Prophylaxis
     Dates: start: 20190705
  7. INNOHEP [Concomitant]
     Active Substance: TINZAPARIN SODIUM
     Dates: start: 20190320, end: 20200519
  8. ONDANSETRON [Concomitant]
     Active Substance: ONDANSETRON
     Dates: start: 20190919, end: 20190919
  9. BROMAZEPAM [Concomitant]
     Active Substance: BROMAZEPAM
     Indication: Prophylaxis
     Dates: start: 20190117, end: 20200520
  10. NICOPATCH [Concomitant]
     Active Substance: NICOTINE
     Indication: Ex-tobacco user
     Dates: start: 20190201, end: 201912
  11. CARBOPLATIN [Concomitant]
     Active Substance: CARBOPLATIN
     Dates: start: 20191010, end: 20200227
  12. PACLITAXEL [Concomitant]
     Active Substance: PACLITAXEL
     Dates: start: 20191010, end: 20200319
  13. CISPLATIN [Concomitant]
     Active Substance: CISPLATIN
     Indication: Neoplasm malignant
     Route: 065
  14. PEMETREXED [Concomitant]
     Active Substance: PEMETREXED
     Indication: Neoplasm malignant
     Dosage: DOSE: 825 UNIT NOT REPORTED
  15. PEMETREXED [Concomitant]
     Active Substance: PEMETREXED

REACTIONS (1)
  - Anaphylactic reaction [Recovered/Resolved]

NARRATIVE: CASE EVENT DATE: 20191010
